FAERS Safety Report 8238469-7 (Version None)
Quarter: 2012Q1

REPORT INFORMATION
  Report Type: 
  Country: None (occurrence: None)
  Receive Date: 20120327
  Receipt Date: 20120313
  Transmission Date: 20120608
  Serious: Yes (Other)
  Sender: FDA-Public Use
  Company Number: CA-ROCHE-GNE227738

PATIENT
  Sex: Male
  Weight: 88.094 kg

DRUGS (4)
  1. OMALIZUMAB [Suspect]
     Dosage: 300 MG, 1/MONTH
     Route: 058
     Dates: start: 20091216
  2. OMALIZUMAB [Suspect]
     Indication: ASTHMA
     Dosage: 300 MG, 1/MONTH
     Route: 058
     Dates: start: 20060208
  3. HYZAAR [Concomitant]
     Indication: PRODUCT USED FOR UNKNOWN INDICATION
     Dosage: UNK
     Dates: start: 20070524
  4. OMALIZUMAB [Suspect]
     Route: 058
     Dates: start: 20090408

REACTIONS (16)
  - WHEEZING [None]
  - CANDIDIASIS [None]
  - BRONCHITIS [None]
  - RESPIRATORY TRACT INFECTION [None]
  - BREATH SOUNDS ABNORMAL [None]
  - ASTHMA [None]
  - INCREASED UPPER AIRWAY SECRETION [None]
  - PRODUCTIVE COUGH [None]
  - SPUTUM DISCOLOURED [None]
  - INSOMNIA [None]
  - HYPERTENSION [None]
  - FATIGUE [None]
  - DYSPNOEA [None]
  - NASOPHARYNGITIS [None]
  - OROPHARYNGEAL PAIN [None]
  - LUNG DISORDER [None]
